FAERS Safety Report 25733501 (Version 1)
Quarter: 2025Q3

REPORT INFORMATION
  Report Type: Spontaneous
  Country: EU (occurrence: EU)
  Receive Date: 20250828
  Receipt Date: 20250828
  Transmission Date: 20251020
  Serious: Yes (Hospitalization, Other)
  Sender: BOEHRINGER INGELHEIM
  Company Number: EU-BoehringerIngelheim-2025-BI-090601

PATIENT
  Age: 44 Year
  Sex: Male

DRUGS (9)
  1. PRAMIPEXOLE [Suspect]
     Active Substance: PRAMIPEXOLE
     Indication: Parkinson^s disease
  2. AZILECT [Concomitant]
     Active Substance: RASAGILINE MESYLATE
  3. BENSERAZIDE HYDROCHLORIDE\LEVODOPA [Concomitant]
     Active Substance: BENSERAZIDE HYDROCHLORIDE\LEVODOPA
     Dosage: THREE TIMES A DAY
     Dates: start: 2015
  4. BENSERAZIDE HYDROCHLORIDE\LEVODOPA [Concomitant]
     Active Substance: BENSERAZIDE HYDROCHLORIDE\LEVODOPA
     Dosage: 125 + 62,5MG FOUR TIMES A DAY
     Dates: start: 2016
  5. EFFEXOR [Concomitant]
     Active Substance: VENLAFAXINE HYDROCHLORIDE
     Indication: Depression
  6. LAMICTAL [Concomitant]
     Active Substance: LAMOTRIGINE
  7. CHOLECALCIFEROL [Concomitant]
     Active Substance: CHOLECALCIFEROL
     Dosage: 100000 IU/2ML
     Dates: start: 2015
  8. PRAZEPAM [Concomitant]
     Active Substance: PRAZEPAM
     Indication: Anxiety
  9. PROPRANOLOL HYDROCHLORIDE [Concomitant]
     Active Substance: PROPRANOLOL HYDROCHLORIDE
     Indication: Stress
     Dosage: QUARTER TO HALF TABLET OF 40MG ONCE DAILY
     Dates: start: 2015

REACTIONS (18)
  - Obsessive-compulsive disorder [Not Recovered/Not Resolved]
  - Gambling disorder [Not Recovered/Not Resolved]
  - Dopamine dysregulation syndrome [Unknown]
  - Suicide attempt [Recovered/Resolved]
  - Somnolence [Unknown]
  - Compulsive shopping [Unknown]
  - Aggression [Unknown]
  - Fatigue [Unknown]
  - Burnout syndrome [Unknown]
  - Hypersexuality [Not Recovered/Not Resolved]
  - Alcoholism [Not Recovered/Not Resolved]
  - Tobacco abuse [Unknown]
  - Abnormal behaviour [Unknown]
  - Apathy [Unknown]
  - Bulimia nervosa [Unknown]
  - Dyskinesia [Unknown]
  - Bipolar disorder [Unknown]
  - Anxiety [Unknown]

NARRATIVE: CASE EVENT DATE: 20120101
